FAERS Safety Report 8416317 (Version 2)
Quarter: 2013Q1

REPORT INFORMATION
  Report Type: Spontaneous
  Country: US (occurrence: US)
  Receive Date: 20120218
  Receipt Date: 20130119
  Transmission Date: 20140127
  Serious: No
  Sender: FDA-Public Use
  Company Number: US-ALLERGAN-1116236US

PATIENT
  Age: 53 Year
  Sex: Male
  Weight: 95.24 kg

DRUGS (2)
  1. BOTOX? [Suspect]
     Indication: MUSCLE SPASMS
     Dosage: 400 UNITS, SINGLE
     Route: 030
     Dates: start: 20111209, end: 20111209
  2. BOTOX? [Suspect]
     Indication: QUADRIPLEGIA

REACTIONS (3)
  - Sensory disturbance [Not Recovered/Not Resolved]
  - Muscular weakness [Not Recovered/Not Resolved]
  - Dyspnoea [Not Recovered/Not Resolved]
